FAERS Safety Report 5494744-0 (Version None)
Quarter: 2007Q4

REPORT INFORMATION
  Report Type: 
  Country: None (occurrence: None)
  Receive Date: 20071023
  Receipt Date: 20071023
  Transmission Date: 20080405
  Serious: Yes (Other)
  Sender: FDA-Public Use
  Company Number: None

PATIENT
  Age: 54 Year
  Sex: Female
  Weight: 72.5755 kg

DRUGS (1)
  1. MONISTAT 1 MONISTAT [Suspect]
     Indication: FUNGAL INFECTION
     Dosage: ONE DOSE 1 TIME VAG
     Route: 067
     Dates: start: 20070920, end: 20070920

REACTIONS (2)
  - SKIN BURNING SENSATION [None]
  - VAGINAL PAIN [None]
